FAERS Safety Report 21608093 (Version 1)
Quarter: 2022Q4

REPORT INFORMATION
  Report Type: Spontaneous
  Country: FR (occurrence: FR)
  Receive Date: 20221117
  Receipt Date: 20221117
  Transmission Date: 20230112
  Serious: Yes (Life-Threatening)
  Sender: FDA-Public Use
  Company Number: None

PATIENT
  Age: 65 Year
  Sex: Female
  Weight: 76 kg

DRUGS (7)
  1. OXALIPLATIN [Suspect]
     Active Substance: OXALIPLATIN
     Indication: Adenocarcinoma of colon
     Dosage: 1 DF
     Route: 042
     Dates: start: 20220809, end: 20220822
  2. AMLODIPINE [Concomitant]
     Active Substance: AMLODIPINE BESYLATE
  3. FLUOROURACIL [Concomitant]
     Active Substance: FLUOROURACIL
  4. AVASTIN [Concomitant]
     Active Substance: BEVACIZUMAB
  5. DAFALGAN [Concomitant]
     Active Substance: ACETAMINOPHEN
  6. LEUCOVORIN [Concomitant]
     Active Substance: LEUCOVORIN
  7. HYDROCHLOROTHIAZIDE [Concomitant]
     Active Substance: HYDROCHLOROTHIAZIDE

REACTIONS (5)
  - Dysphagia [Recovered/Resolved]
  - Dyspnoea [Recovered/Resolved]
  - Dysphonia [Recovered/Resolved]
  - Muscle spasms [Recovered/Resolved]
  - Face oedema [Recovered/Resolved]
